FAERS Safety Report 17767069 (Version 1)
Quarter: 2020Q2

REPORT INFORMATION
  Report Type: Spontaneous
  Country: GR (occurrence: GR)
  Receive Date: 20200511
  Receipt Date: 20200511
  Transmission Date: 20200714
  Serious: Yes (Life-Threatening)
  Sender: FDA-Public Use
  Company Number: NVSC2020GR127072

PATIENT

DRUGS (6)
  1. CAPECITABINE. [Suspect]
     Active Substance: CAPECITABINE
     Indication: NEUROENDOCRINE CARCINOMA METASTATIC
     Dosage: 1000 MG/M2, BID ON DAY 1-14 FOR 6 CYCLES
     Route: 048
  2. IRINOTECAN [Suspect]
     Active Substance: IRINOTECAN
     Indication: NEUROENDOCRINE CARCINOMA METASTATIC
     Dosage: 125 MG/M2 OVER 90 MINUTES ON DAY 1
     Route: 042
  3. BEVACIZUMAB. [Suspect]
     Active Substance: BEVACIZUMAB
     Indication: NEUROENDOCRINE CARCINOMA METASTATIC
     Dosage: 8 MG/KG ON DAY 1
     Route: 065
  4. PAZOPANIB [Suspect]
     Active Substance: PAZOPANIB
     Indication: NEUROENDOCRINE CARCINOMA METASTATIC
     Dosage: 800 MG, QD
     Route: 048
  5. CAPECITABINE. [Suspect]
     Active Substance: CAPECITABINE
     Dosage: 1600 MG/M2, QD DAYS 1 TO 14 EVERY 3 WEEKS
     Route: 048
  6. OXALIPLATIN. [Suspect]
     Active Substance: OXALIPLATIN
     Indication: NEUROENDOCRINE CARCINOMA METASTATIC
     Dosage: 80 MG/M2 ON DAY 1
     Route: 042

REACTIONS (2)
  - Anaemia [Unknown]
  - Product use in unapproved indication [Unknown]
